FAERS Safety Report 8245231-8 (Version None)
Quarter: 2012Q1

REPORT INFORMATION
  Report Type: 
  Country: None (occurrence: None)
  Receive Date: 20120329
  Receipt Date: 20120321
  Transmission Date: 20120608
  Serious: Yes (Hospitalization)
  Sender: FDA-Public Use
  Company Number: US-MYLANLABS-2012S1006171

PATIENT
  Age: 47 Year
  Sex: Female
  Weight: 86.18 kg

DRUGS (2)
  1. TAMOXIFEN TABLETS [Suspect]
     Indication: NEOPLASM PROPHYLAXIS
     Route: 048
     Dates: start: 20070601, end: 20120301
  2. DIOVAN [Concomitant]

REACTIONS (1)
  - PELVIC MASS [None]
